FAERS Safety Report 8808469 (Version 1)
Quarter: 2012Q4

REPORT INFORMATION
  Report Type: 
  Country: US (occurrence: US)
  Receive Date: 20120926
  Receipt Date: 20120926
  Transmission Date: 20130627
  Serious: Yes (Other)
  Sender: FDA-Public Use
  Company Number: US-ELI_LILLY_AND_COMPANY-US201209006596

PATIENT
  Age: 59 Year
  Sex: Male
  Weight: 84.81 kg

DRUGS (4)
  1. EFFIENT [Suspect]
     Indication: STENT PLACEMENT
     Dosage: 10 mg, qd
  2. METOPROLOL [Concomitant]
  3. BAYER ASPIRIN [Concomitant]
  4. LISINOPRIL [Concomitant]

REACTIONS (1)
  - Cardiac pacemaker insertion [Unknown]
